FAERS Safety Report 12689292 (Version 1)
Quarter: 2016Q3

REPORT INFORMATION
  Report Type: Spontaneous
  Country: US (occurrence: US)
  Receive Date: 20160826
  Receipt Date: 20160826
  Transmission Date: 20161109
  Serious: Yes (Other)
  Sender: FDA-Public Use
  Company Number: US-AMGEN-USASP2016096008

PATIENT
  Age: 72 Year
  Sex: Male
  Weight: 89.8 kg

DRUGS (4)
  1. VITAMIN D [Suspect]
     Active Substance: CHOLECALCIFEROL
     Indication: PRODUCT USED FOR UNKNOWN INDICATION
     Route: 065
  2. PROLIA [Suspect]
     Active Substance: DENOSUMAB
     Indication: PRODUCT USED FOR UNKNOWN INDICATION
     Dosage: 60 MG, Q6MO
     Route: 058
     Dates: start: 20160601
  3. ELIGARD [Suspect]
     Active Substance: LEUPROLIDE ACETATE
     Indication: PROSTATE CANCER
     Dosage: 225 MG, Q3MO
     Route: 065
     Dates: start: 20160601, end: 20160601
  4. PROSTEON [Suspect]
     Active Substance: MINERALS
     Indication: BONE LOSS
     Dosage: 2 TAB, BID
     Route: 065
     Dates: start: 20160608, end: 201606

REACTIONS (18)
  - Skin fissures [Unknown]
  - Libido disorder [Unknown]
  - Musculoskeletal disorder [Unknown]
  - Stress [Unknown]
  - Peripheral swelling [Recovering/Resolving]
  - Arthralgia [Recovering/Resolving]
  - Dyspnoea [Unknown]
  - Sleep disorder [Unknown]
  - Musculoskeletal stiffness [Unknown]
  - Movement disorder [Unknown]
  - Hot flush [Unknown]
  - Pollakiuria [Recovering/Resolving]
  - Dysuria [Recovering/Resolving]
  - Myalgia [Unknown]
  - Mobility decreased [Unknown]
  - Diverticular perforation [Unknown]
  - Pain [Recovering/Resolving]
  - Grip strength decreased [Unknown]

NARRATIVE: CASE EVENT DATE: 2016
